FAERS Safety Report 16738658 (Version 1)
Quarter: 2019Q3

REPORT INFORMATION
  Report Type: Spontaneous
  Country: FR (occurrence: FR)
  Receive Date: 20190826
  Receipt Date: 20190826
  Transmission Date: 20191005
  Serious: Yes (Other)
  Sender: FDA-Public Use
  Company Number: FR-UCBSA-2019036114

PATIENT
  Sex: Female
  Weight: 85 kg

DRUGS (3)
  1. LAMICTAL [Suspect]
     Active Substance: LAMOTRIGINE
     Indication: EPILEPSY
     Dosage: 200MG/DAY
     Dates: start: 20180415
  2. KEPPRA [Suspect]
     Active Substance: LEVETIRACETAM
     Indication: EPILEPSY
     Dosage: 3000MG/DAY
     Dates: start: 20180415
  3. VIMPAT [Suspect]
     Active Substance: LACOSAMIDE
     Indication: EPILEPSY
     Dosage: 300MG/DAY
     Dates: start: 20180323, end: 20180415

REACTIONS (3)
  - Maternal exposure during pregnancy [Unknown]
  - Twin pregnancy [Unknown]
  - Epilepsy [Unknown]

NARRATIVE: CASE EVENT DATE: 2018
